FAERS Safety Report 8120569-3 (Version None)
Quarter: 2012Q1

REPORT INFORMATION
  Report Type: 
  Country: None (occurrence: None)
  Receive Date: 20120207
  Receipt Date: 20120131
  Transmission Date: 20120608
  Serious: Yes (Hospitalization, Other)
  Sender: FDA-Public Use
  Company Number: US-ASTRAZENECA-2010SE38569

PATIENT
  Age: 68 Year
  Sex: Female
  Weight: 66.2 kg

DRUGS (4)
  1. SYMBICORT [Suspect]
     Indication: EMPHYSEMA
     Dosage: TOTAL DAILY DOSE 640 MCG, TWO TIMES A DAY
     Route: 055
  2. SYMBICORT [Suspect]
     Dosage: 160/4.5 BID
     Route: 055
  3. DALIRESP [Concomitant]
     Indication: CHRONIC OBSTRUCTIVE PULMONARY DISEASE
  4. COMBIVENT [Concomitant]
     Indication: EMPHYSEMA

REACTIONS (4)
  - FOOT FRACTURE [None]
  - DYSPNOEA [None]
  - UPPER RESPIRATORY TRACT INFECTION [None]
  - PNEUMONIA [None]
